FAERS Safety Report 5074859-1 (Version None)
Quarter: 2006Q3

REPORT INFORMATION
  Report Type: 
  Country: None (occurrence: None)
  Receive Date: 20060717
  Receipt Date: 20060306
  Transmission Date: 20061208
  Serious: Yes (Hospitalization)
  Sender: FDA-Public Use
  Company Number: 2006000310

PATIENT
  Age: 86 Year
  Sex: Male

DRUGS (4)
  1. TARCEVA [Suspect]
     Indication: NON-SMALL CELL LUNG CANCER
     Dosage: 150 MG (QD), ORAL
     Route: 048
     Dates: start: 20060101
  2. MORPHINE [Concomitant]
  3. LASIX [Concomitant]
  4. BLOOD THINNER [Concomitant]

REACTIONS (3)
  - INCOHERENT [None]
  - SPEECH DISORDER [None]
  - UROSEPSIS [None]
